FAERS Safety Report 7731738-6 (Version None)
Quarter: 2011Q3

REPORT INFORMATION
  Report Type: 
  Country: None (occurrence: None)
  Receive Date: 20110906
  Receipt Date: 20110823
  Transmission Date: 20111222
  Serious: Yes (Other)
  Sender: FDA-Public Use
  Company Number: PHHY2011US56804

PATIENT
  Sex: Male

DRUGS (3)
  1. VITAMIN TAB [Concomitant]
  2. CLARITIN [Concomitant]
     Indication: HYPERSENSITIVITY
  3. FOCALIN XR [Suspect]
     Dosage: 5 MG, QD
     Route: 048
     Dates: start: 20110617

REACTIONS (11)
  - VIRAL INFECTION [None]
  - HEART RATE IRREGULAR [None]
  - PYREXIA [None]
  - FATIGUE [None]
  - TACHYCARDIA [None]
  - NAUSEA [None]
  - VOMITING [None]
  - FEELING ABNORMAL [None]
  - COLD SWEAT [None]
  - RASH [None]
  - DRY MOUTH [None]
